FAERS Safety Report 6427304-5 (Version None)
Quarter: 2009Q4

REPORT INFORMATION
  Report Type: 
  Country: None (occurrence: None)
  Receive Date: 20091104
  Receipt Date: 20091027
  Transmission Date: 20100525
  Serious: Yes (Hospitalization)
  Sender: FDA-Public Use
  Company Number: B0601284A

PATIENT
  Sex: Female
  Weight: 48 kg

DRUGS (7)
  1. PAROXETINE [Suspect]
     Dosage: 20MG PER DAY
     Route: 048
     Dates: start: 20090903, end: 20090918
  2. SEROQUEL [Suspect]
     Indication: PSYCHOTIC DISORDER
     Dosage: 300MG PER DAY
     Route: 048
     Dates: start: 20090907, end: 20090918
  3. CIPROFLOXACIN [Suspect]
     Indication: URINARY TRACT INFECTION
     Dosage: 500MG TWICE PER DAY
     Route: 048
     Dates: start: 20090909, end: 20090914
  4. STILNOX [Suspect]
     Indication: DRUG USE FOR UNKNOWN INDICATION
     Dosage: 12.5MG PER DAY
     Route: 048
  5. DISTRANEURIN [Suspect]
     Indication: DRUG USE FOR UNKNOWN INDICATION
     Dosage: 300MG THREE TIMES PER DAY
     Route: 048
     Dates: start: 20090909
  6. TEMESTA [Concomitant]
     Indication: DRUG USE FOR UNKNOWN INDICATION
     Dosage: 1MG THREE TIMES PER DAY
     Route: 048
     Dates: end: 20090909
  7. HALDOL [Concomitant]
     Indication: DRUG USE FOR UNKNOWN INDICATION
     Dosage: .5MG THREE TIMES PER DAY
     Route: 065
     Dates: start: 20090918

REACTIONS (9)
  - C-REACTIVE PROTEIN INCREASED [None]
  - CONFUSIONAL STATE [None]
  - DRUG INTERACTION [None]
  - INFLAMMATION [None]
  - LEUKOCYTOSIS [None]
  - MAJOR DEPRESSION [None]
  - MYDRIASIS [None]
  - URINARY RETENTION [None]
  - URINARY TRACT INFECTION [None]
